FAERS Safety Report 12458874 (Version 1)
Quarter: 2016Q2

REPORT INFORMATION
  Report Type: Spontaneous
  Country: US (occurrence: None)
  Receive Date: 20160610
  Receipt Date: 20160610
  Transmission Date: 20160815
  Serious: Yes (Disabling)
  Sender: FDA-Public Use
  Company Number: None

PATIENT
  Age: 69 Year
  Sex: Female
  Weight: 83.92 kg

DRUGS (8)
  1. TRINTELLIX [Suspect]
     Active Substance: VORTIOXETINE HYDROBROMIDE
     Indication: DEPRESSION
     Route: 048
     Dates: start: 20140718, end: 20150902
  2. VITAMIN D [Concomitant]
     Active Substance: CHOLECALCIFEROL
  3. SULFASALAZINE. [Concomitant]
     Active Substance: SULFASALAZINE
  4. SINGULAIR [Concomitant]
     Active Substance: MONTELUKAST SODIUM
  5. TUMS [Concomitant]
     Active Substance: CALCIUM CARBONATE
  6. TYLENOL [Concomitant]
     Active Substance: ACETAMINOPHEN
  7. VALSARTAN AND HYDROCHLOROTHIAZIDE [Concomitant]
     Active Substance: HYDROCHLOROTHIAZIDE\VALSARTAN
  8. OMEPRAZOLE. [Concomitant]
     Active Substance: OMEPRAZOLE

REACTIONS (5)
  - Abnormal dreams [None]
  - Depression [None]
  - Enuresis [None]
  - Neck pain [None]
  - Libido decreased [None]

NARRATIVE: CASE EVENT DATE: 20150515
